FAERS Safety Report 8380582-8 (Version None)
Quarter: 2012Q2

REPORT INFORMATION
  Report Type: 
  Country: None (occurrence: None)
  Receive Date: 20120523
  Receipt Date: 20120510
  Transmission Date: 20120825
  Serious: Yes (Death)
  Sender: FDA-Public Use
  Company Number: GB-TEVA-337279ISR

PATIENT
  Age: 88 Year
  Sex: Female
  Weight: 38 kg

DRUGS (1)
  1. WARFARIN SODIUM [Suspect]
     Indication: ATRIAL FIBRILLATION
     Route: 048

REACTIONS (2)
  - MUSCLE HAEMORRHAGE [None]
  - HAEMORRHAGIC DISORDER [None]
